FAERS Safety Report 4553769-X (Version None)
Quarter: 2005Q1

REPORT INFORMATION
  Report Type: 
  Country: None (occurrence: None)
  Receive Date: 20050113
  Receipt Date: 20050113
  Transmission Date: 20050727
  Serious: Yes (Hospitalization, Other)
  Sender: FDA-Public Use
  Company Number: None

PATIENT
  Age: 38 Year
  Sex: Female
  Weight: 112.4921 kg

DRUGS (7)
  1. CORICIDIN D SRT [Suspect]
     Indication: INFLUENZA
     Dosage: 1 TAB ORAL
     Route: 048
     Dates: start: 19970928, end: 19970929
  2. DRIXORAL [Suspect]
     Indication: INFLUENZA
     Dosage: 1 TAB
     Dates: start: 19970930, end: 19971001
  3. TAVIST D [Concomitant]
  4. ROBITUSSIN COLD + COUGH LIQUI-GELS [Concomitant]
  5. NAPROXEN [Concomitant]
  6. ENTEX LA [Concomitant]
  7. LORTAB [Concomitant]

REACTIONS (15)
  - APHASIA [None]
  - ARRHYTHMIA SUPRAVENTRICULAR [None]
  - CARDIOMEGALY [None]
  - CEREBROVASCULAR ACCIDENT [None]
  - CHRONIC OBSTRUCTIVE PULMONARY DISEASE [None]
  - DYSARTHRIA [None]
  - FACIAL PALSY [None]
  - HEADACHE [None]
  - HEMIPARESIS [None]
  - HYPERREFLEXIA [None]
  - HYPERTENSION [None]
  - INFLUENZA LIKE ILLNESS [None]
  - MONOPLEGIA [None]
  - MOTOR DYSFUNCTION [None]
  - VASCULAR OCCLUSION [None]
